FAERS Safety Report 6943941-3 (Version None)
Quarter: 2010Q3

REPORT INFORMATION
  Report Type: 
  Country: None (occurrence: None)
  Receive Date: 20100826
  Receipt Date: 20100824
  Transmission Date: 20110219
  Serious: Yes (Other)
  Sender: FDA-Public Use
  Company Number: KR-MERCK-1008KOR00045

PATIENT
  Age: 61 Year
  Sex: Female
  Weight: 59 kg

DRUGS (6)
  1. JANUVIA [Suspect]
     Indication: DIABETES MELLITUS
     Route: 048
     Dates: start: 20100709, end: 20100814
  2. JANUVIA [Suspect]
     Route: 048
     Dates: start: 20100801
  3. ASPIRIN [Concomitant]
     Indication: CARDIOVASCULAR EVENT PROPHYLAXIS
     Route: 048
     Dates: start: 20090409
  4. GLYBURIDE [Concomitant]
     Indication: DIABETES MELLITUS
     Route: 048
     Dates: start: 20090206
  5. AMLODIPINE BESYLATE AND VALSARTAN [Concomitant]
     Indication: HYPERTENSION
     Route: 048
     Dates: start: 20100308
  6. METFORMIN HYDROCHLORIDE [Concomitant]
     Indication: DIABETES MELLITUS
     Route: 048
     Dates: start: 20090930

REACTIONS (3)
  - DYSPNOEA [None]
  - HYPERHIDROSIS [None]
  - PARAESTHESIA ORAL [None]
